FAERS Safety Report 12185247 (Version 1)
Quarter: 2016Q1

REPORT INFORMATION
  Report Type: Spontaneous
  Country: FR (occurrence: FR)
  Receive Date: 20160316
  Receipt Date: 20160316
  Transmission Date: 20160526
  Serious: Yes (Hospitalization)
  Sender: FDA-Public Use
  Company Number: FR-TEVA-642774ISR

PATIENT
  Age: 23 Year
  Sex: Male

DRUGS (4)
  1. DOXORUBICINE TEVA 200 MG/100 ML [Suspect]
     Active Substance: DOXORUBICIN
     Indication: OSTEOSARCOMA
     Dosage: 108 MILLIGRAM DAILY; FIRST COURSE OF API CHEMOTHERAPY PROTOCOL
     Route: 041
     Dates: start: 20151222, end: 20151223
  2. CISPLATINE ACCORD [Suspect]
     Active Substance: CISPLATIN
     Indication: OSTEOSARCOMA
     Dosage: 181 MILLIGRAM DAILY; FIRST COURSE OF API CHEMOTHERAPY PROTOCOL
     Route: 041
     Dates: start: 20151223, end: 20151223
  3. IFOSFAMIDE EG 40 MG/ML [Suspect]
     Active Substance: IFOSFAMIDE
     Indication: OSTEOSARCOMA
     Dosage: 9.04 GRAM DAILY; FIRST COURSE OF API CHEMOTHERAPY PROTOCOL
     Route: 041
     Dates: start: 20151223, end: 20151224
  4. MESNA EG 100 MG/ML [Suspect]
     Active Substance: MESNA
     Indication: PROPHYLAXIS
     Route: 042
     Dates: start: 20151223, end: 20151224

REACTIONS (3)
  - Deafness neurosensory [Not Recovered/Not Resolved]
  - Acute kidney injury [Recovered/Resolved]
  - Bone marrow failure [Recovered/Resolved]

NARRATIVE: CASE EVENT DATE: 20160101
